FAERS Safety Report 6154815-2 (Version None)
Quarter: 2009Q2

REPORT INFORMATION
  Report Type: 
  Country: None (occurrence: None)
  Receive Date: 20090414
  Receipt Date: 20090410
  Transmission Date: 20091009
  Serious: Yes (Death, Other)
  Sender: FDA-Public Use
  Company Number: PHHY2009JP12273

PATIENT
  Age: 50 Year
  Sex: Female

DRUGS (3)
  1. GLEEVEC [Suspect]
     Indication: CHRONIC MYELOID LEUKAEMIA
     Dosage: 200MG
     Route: 048
     Dates: start: 20050101
  2. GLEEVEC [Suspect]
     Dosage: 300MG
     Route: 048
     Dates: start: 20050401
  3. GLEEVEC [Suspect]
     Dosage: 400MG
     Route: 048
     Dates: start: 20070201

REACTIONS (13)
  - ALTERED STATE OF CONSCIOUSNESS [None]
  - APHASIA [None]
  - BLAST CRISIS IN MYELOGENOUS LEUKAEMIA [None]
  - C-REACTIVE PROTEIN INCREASED [None]
  - CEREBRAL INFARCTION [None]
  - CHRONIC LYMPHOCYTIC LEUKAEMIA TRANSFORMATION [None]
  - HEMIPLEGIA [None]
  - PNEUMONIA [None]
  - PRODUCTIVE COUGH [None]
  - PYREXIA [None]
  - SUBDURAL HAEMATOMA [None]
  - SUBDURAL HAEMATOMA EVACUATION [None]
  - WHITE BLOOD CELL COUNT INCREASED [None]
